FAERS Safety Report 9645968 (Version 2)
Quarter: 2013Q4

REPORT INFORMATION
  Report Type: Spontaneous
  Country: US (occurrence: None)
  Receive Date: 20131023
  Receipt Date: 20131120
  Transmission Date: 20140711
  Serious: Yes (Other)
  Sender: FDA-Public Use
  Company Number: 2013-US-001766

PATIENT
  Age: 44 Year
  Sex: Female
  Weight: 124.7 kg

DRUGS (1)
  1. XYREM (SODIUM OXYBATE) ORAL SOLUTION, 500MG/ML [Suspect]
     Indication: INSOMNIA
     Route: 048
     Dates: start: 201309, end: 201309

REACTIONS (3)
  - Knee arthroplasty [None]
  - Poor quality sleep [None]
  - Arthralgia [None]
